FAERS Safety Report 8380536-1 (Version None)
Quarter: 2012Q2

REPORT INFORMATION
  Report Type: 
  Country: None (occurrence: None)
  Receive Date: 20120523
  Receipt Date: 20120515
  Transmission Date: 20120825
  Serious: Yes (Other)
  Sender: FDA-Public Use
  Company Number: CA-ROCHE-1057579

PATIENT
  Sex: Female

DRUGS (4)
  1. XOLAIR [Suspect]
     Indication: ASTHMA
     Dosage: Q4
     Route: 058
     Dates: start: 20101110
  2. QVAR 40 [Concomitant]
  3. SYMBICORT [Concomitant]
  4. SINGULAIR [Concomitant]

REACTIONS (2)
  - PNEUMONIA [None]
  - LUNG INFILTRATION [None]
